FAERS Safety Report 21760713 (Version 1)
Quarter: 2022Q4

REPORT INFORMATION
  Report Type: Spontaneous
  Country: US (occurrence: None)
  Receive Date: 20221220
  Receipt Date: 20221220
  Transmission Date: 20230113
  Serious: Yes (Death)
  Sender: FDA-Public Use
  Company Number: None

PATIENT
  Sex: Male

DRUGS (2)
  1. SILDENAFIL [Suspect]
     Active Substance: SILDENAFIL
     Indication: Pulmonary arterial hypertension
     Dosage: 20MG ORAL??TAKE 4 TABLETS (80 MG) BY MOUTH THREE TIMES DAILY.?
     Route: 048
     Dates: start: 20210129, end: 202212
  2. MYCOPHENOLAT TAB [Concomitant]

REACTIONS (1)
  - Death [None]
